FAERS Safety Report 7661559-4 (Version None)
Quarter: 2011Q3

REPORT INFORMATION
  Report Type: 
  Country: None (occurrence: None)
  Receive Date: 20110805
  Receipt Date: 20110725
  Transmission Date: 20111222
  Serious: Yes (Hospitalization, Other)
  Sender: FDA-Public Use
  Company Number: US-CELGENEUS-163-21880-11061789

PATIENT
  Sex: Male
  Weight: 95.7 kg

DRUGS (3)
  1. REVLIMID [Suspect]
     Dosage: 25 MILLIGRAM
     Route: 048
     Dates: start: 20110513, end: 20110101
  2. VELCADE [Suspect]
     Route: 058
     Dates: start: 20110523
  3. DEXAMETHASONE [Concomitant]
     Dosage: 2.8571 MILLIGRAM
     Route: 048
     Dates: start: 20110523

REACTIONS (5)
  - BACK PAIN [None]
  - DEEP VEIN THROMBOSIS [None]
  - OEDEMA PERIPHERAL [None]
  - ILEUS PARALYTIC [None]
  - RENAL FAILURE [None]
